FAERS Safety Report 21667514 (Version 1)
Quarter: 2022Q4

REPORT INFORMATION
  Report Type: Spontaneous
  Country: US (occurrence: None)
  Receive Date: 20221130
  Receipt Date: 20221130
  Transmission Date: 20230112
  Serious: No
  Sender: FDA-Public Use
  Company Number: None

PATIENT
  Age: 87 Year
  Sex: Female
  Weight: 51.71 kg

DRUGS (5)
  1. LENALIDOMIDE [Suspect]
     Active Substance: LENALIDOMIDE
     Indication: Plasma cell myeloma
     Dosage: OTHER FREQUENCY : 21D ON 7D OFF;?
     Route: 048
  2. ASPIRIN [Concomitant]
  3. DEXAMETHASONE [Concomitant]
  4. LATANOPROST [Concomitant]
  5. LOSARTAN [Concomitant]

REACTIONS (1)
  - Disease progression [None]
